FAERS Safety Report 9410073 (Version 1)
Quarter: 2013Q3

REPORT INFORMATION
  Report Type: Spontaneous
  Country: IN (occurrence: IN)
  Receive Date: 20130719
  Receipt Date: 20130719
  Transmission Date: 20140515
  Serious: Yes (Other)
  Sender: FDA-Public Use
  Company Number: IN-JNJFOC-20130707377

PATIENT
  Sex: Female

DRUGS (5)
  1. DOXORUBICIN [Suspect]
     Indication: BREAST CANCER
     Dosage: ON DAY 1
     Route: 042
  2. GEMCITABINE [Suspect]
     Indication: BREAST CANCER
     Dosage: DAYS 2 AND 8
     Route: 042
  3. ANTIBIOTICS [Concomitant]
     Indication: SUPPORTIVE CARE
     Route: 065
  4. ANTIEMETICS [Concomitant]
     Indication: SUPPORTIVE CARE
     Route: 065
  5. GRANULOCYTE COLONY STIMULATING FACTOR [Concomitant]
     Indication: SUPPORTIVE CARE
     Route: 065

REACTIONS (1)
  - Hypoglycaemia [Unknown]
